FAERS Safety Report 8231111-0 (Version None)
Quarter: 2012Q1

REPORT INFORMATION
  Report Type: 
  Country: None (occurrence: None)
  Receive Date: 20120322
  Receipt Date: 20120322
  Transmission Date: 20120608
  Serious: No
  Sender: FDA-Public Use
  Company Number: None

PATIENT
  Age: 39 Year
  Sex: Female
  Weight: 58.059 kg

DRUGS (1)
  1. RESTASIS [Suspect]
     Indication: DRY EYE
     Dosage: ONE DROP
     Route: 047
     Dates: start: 20120318, end: 20120322

REACTIONS (3)
  - SWELLING [None]
  - WEIGHT INCREASED [None]
  - ABDOMINAL DISTENSION [None]
